FAERS Safety Report 15288091 (Version 1)
Quarter: 2018Q3

REPORT INFORMATION
  Report Type: Spontaneous
  Country: US (occurrence: US)
  Receive Date: 20180802
  Receipt Date: 20180802
  Transmission Date: 20181010
  Serious: Yes (Other)
  Sender: FDA-Public Use
  Company Number: None

PATIENT
  Age: 66 Year
  Sex: Female
  Weight: 81 kg

DRUGS (10)
  1. OMEGA XL [Concomitant]
     Active Substance: DIETARY SUPPLEMENT
  2. VITAMIN D3 [Concomitant]
     Active Substance: CHOLECALCIFEROL
  3. VITAMIN E [Concomitant]
     Active Substance: .ALPHA.-TOCOPHEROL
  4. VIATIV CHEW [Concomitant]
  5. GINKO BILOBA [Concomitant]
     Active Substance: GINKGO
  6. VALSARTAN AND HYDROCHLOROTHIAZIDE TABLETS, USP [Suspect]
     Active Substance: HYDROCHLOROTHIAZIDE\VALSARTAN
     Indication: HYPERTENSION
     Dosage: QUANTITY:90 TABLET(S);?
     Route: 048
     Dates: start: 20130101, end: 20180727
  7. VALSARTAN AND HYDROCHLOROTHIAZIDE [Suspect]
     Active Substance: HYDROCHLOROTHIAZIDE\VALSARTAN
     Indication: HYPERTENSION
     Dosage: ?          QUANTITY:30 TABLET(S);?
     Route: 048
     Dates: start: 20130101, end: 20180727
  8. CENTRUM SILVER [Concomitant]
     Active Substance: MINERALS\VITAMINS
  9. OLM MED/HCTZ [Concomitant]
  10. C [Concomitant]

REACTIONS (7)
  - Product use issue [None]
  - Condition aggravated [None]
  - Drug ineffective [None]
  - Nausea [None]
  - Hypertension [None]
  - Asthenia [None]
  - Dizziness [None]

NARRATIVE: CASE EVENT DATE: 20180219
